FAERS Safety Report 10383866 (Version 1)
Quarter: 2014Q3

REPORT INFORMATION
  Report Type: Spontaneous
  Country: QA (occurrence: None)
  Receive Date: 20140813
  Receipt Date: 20140813
  Transmission Date: 20150326
  Serious: Yes (Life-Threatening, Hospitalization)
  Sender: FDA-Public Use
  Company Number: None

PATIENT
  Age: 28 Year
  Sex: Male
  Weight: 70 kg

DRUGS (2)
  1. CLOPRAM METOCLOPRAMIDE [Suspect]
     Active Substance: METOCLOPRAMIDE
     Indication: VOMITING
     Route: 042
     Dates: start: 20140709, end: 20140709
  2. AMLODIPINE (NORVASC) [Concomitant]

REACTIONS (1)
  - Cardiac arrest [None]

NARRATIVE: CASE EVENT DATE: 20140709
